FAERS Safety Report 4286656-5 (Version None)
Quarter: 2004Q1

REPORT INFORMATION
  Report Type: 
  Country: None (occurrence: None)
  Receive Date: 20040204
  Receipt Date: 20040122
  Transmission Date: 20041129
  Serious: Yes (Hospitalization, Other)
  Sender: FDA-Public Use
  Company Number: HQWYE536522JAN04

PATIENT
  Age: 78 Year
  Sex: Male

DRUGS (3)
  1. PANTOLOC (PANTOPRAZOLE, INJECTION) [Suspect]
     Indication: PEPTIC ULCER
     Dosage: SEE IMAGE
     Route: 042
     Dates: start: 20031220, end: 20031220
  2. PANTOLOC (PANTOPRAZOLE, INJECTION) [Suspect]
     Indication: PEPTIC ULCER
     Dosage: SEE IMAGE
     Route: 042
     Dates: start: 20031220, end: 20031223
  3. PANTOLOC (PANTOPRAZOLE, TABLET, DELAYED RELEASE) [Suspect]
     Indication: PEPTIC ULCER
     Dosage: 40 MG 1 X PER 1 DAY, ORAL
     Route: 048
     Dates: start: 20031224, end: 20040109

REACTIONS (1)
  - ANAEMIA [None]
